FAERS Safety Report 8537044-4 (Version None)
Quarter: 2012Q3

REPORT INFORMATION
  Report Type: 
  Country: None (occurrence: None)
  Receive Date: 20120725
  Receipt Date: 20120713
  Transmission Date: 20120928
  Serious: Yes (Other)
  Sender: FDA-Public Use
  Company Number: US-VERTEX PHARMACEUTICALS INC.-AE-2012-010596

PATIENT
  Sex: Female

DRUGS (3)
  1. INCIVEK [Suspect]
     Indication: HEPATITIS C
     Route: 048
     Dates: start: 20111111, end: 20120120
  2. RIBAVIRIN [Concomitant]
     Indication: HEPATITIS C
     Dates: start: 20111111
  3. PEGASYS [Concomitant]
     Indication: HEPATITIS C
     Dates: start: 20111111

REACTIONS (10)
  - MYOCARDIAL ISCHAEMIA [None]
  - BLOOD PRESSURE INCREASED [None]
  - NAUSEA [None]
  - ABDOMINAL PAIN [None]
  - DRY MOUTH [None]
  - FATIGUE [None]
  - DYSGEUSIA [None]
  - HEADACHE [None]
  - ANAEMIA [None]
  - VOMITING [None]
